FAERS Safety Report 7069049-7 (Version None)
Quarter: 2010Q4

REPORT INFORMATION
  Report Type: 
  Country: None (occurrence: None)
  Receive Date: 20101028
  Receipt Date: 20101019
  Transmission Date: 20110411
  Serious: Yes (Hospitalization, Other)
  Sender: FDA-Public Use
  Company Number: US-ASTRAZENECA-2009UW04893

PATIENT
  Age: 19052 Day
  Sex: Female
  Weight: 38.6 kg

DRUGS (2)
  1. NEXIUM [Suspect]
     Route: 048
     Dates: start: 20080220
  2. SUBUTEX [Concomitant]
     Dates: start: 20100401

REACTIONS (13)
  - ABDOMINAL PAIN UPPER [None]
  - ARTHRITIS [None]
  - CHRONIC OBSTRUCTIVE PULMONARY DISEASE [None]
  - COUGH [None]
  - DYSPNOEA [None]
  - EMPHYSEMA [None]
  - FIBROMYALGIA [None]
  - ILL-DEFINED DISORDER [None]
  - INCREASED UPPER AIRWAY SECRETION [None]
  - INTRACRANIAL ANEURYSM [None]
  - PANIC ATTACK [None]
  - SURGERY [None]
  - WEIGHT DECREASED [None]
